FAERS Safety Report 8610027 (Version 8)
Quarter: 2013Q1

REPORT INFORMATION
  Report Type: Spontaneous
  Country: US (occurrence: US)
  Receive Date: 20120612
  Receipt Date: 20130314
  Transmission Date: 20140127
  Serious: Yes (Hospitalization, Other)
  Sender: FDA-Public Use
  Company Number: US-SANOFI-AVENTIS-2011SA047902

PATIENT
  Age: 67 Year
  Sex: Male
  Weight: 75 kg

DRUGS (17)
  1. PLAVIX [Suspect]
     Indication: ANGIOPLASTY
     Route: 048
     Dates: start: 20080704, end: 20101230
  2. PLAVIX [Suspect]
     Indication: STENT PLACEMENT
     Route: 048
     Dates: start: 20080704, end: 20101230
  3. PLAVIX [Suspect]
     Indication: CORONARY ARTERY DISEASE
     Route: 048
     Dates: start: 20080704, end: 20101230
  4. ASPIRIN [Suspect]
     Indication: CORONARY ARTERY DISEASE
     Route: 048
  5. IBUPROFEN [Suspect]
     Route: 048
  6. VICODIN [Concomitant]
     Dosage: 7.5-500 AND 5-500, 1 BID
     Route: 048
  7. ATORVASTATIN [Concomitant]
     Route: 048
  8. GLYCERYL TRINITRATE [Concomitant]
     Indication: CHEST PAIN
     Dosage: X 3
     Route: 060
  9. METOPROLOL [Concomitant]
  10. LISINOPRIL [Concomitant]
  11. LISINOPRIL W/HYDROCHLOROTHIAZIDE [Concomitant]
  12. INDOMETHACIN [Concomitant]
  13. FERROUS SULFATE [Concomitant]
  14. ACETAMINOPHEN W/HYDROCODONE [Concomitant]
     Indication: PAIN
     Dosage: 5-500 MG TABLET
  15. TADALAFIL [Concomitant]
  16. SIMVASTATIN [Concomitant]
     Dosage: 40 DAILY
  17. NICOTINE [Concomitant]

REACTIONS (16)
  - Gastric cancer [Recovered/Resolved]
  - Gastric ulcer haemorrhage [Recovered/Resolved]
  - Hypotension [Unknown]
  - Syncope [Unknown]
  - Haematochezia [Recovered/Resolved]
  - Anaemia [Recovered/Resolved]
  - Pyrexia [Recovered/Resolved]
  - Haematemesis [Recovered/Resolved]
  - Dizziness [Recovered/Resolved]
  - Visual impairment [Recovered/Resolved]
  - Carotid artery stenosis [Unknown]
  - Renal failure acute [Unknown]
  - Helicobacter gastritis [Unknown]
  - Coronary artery disease [Unknown]
  - Hypertension [Unknown]
  - Arteriosclerosis [Unknown]
